FAERS Safety Report 12214598 (Version 2)
Quarter: 2016Q2

REPORT INFORMATION
  Report Type: Spontaneous
  Country: US (occurrence: US)
  Receive Date: 20160328
  Receipt Date: 20160429
  Transmission Date: 20160815
  Serious: No
  Sender: FDA-Public Use
  Company Number: US-TOLMAR INC.-1049799

PATIENT
  Sex: Female

DRUGS (2)
  1. CALCIPOTRIENE CREAM, 0.005% [Suspect]
     Active Substance: CALCIPOTRIENE
     Indication: NAIL PSORIASIS
     Route: 061
     Dates: start: 201505
  2. DESOXIMETASONE. [Concomitant]
     Active Substance: DESOXIMETASONE
     Dates: start: 201505

REACTIONS (2)
  - Off label use [Unknown]
  - Drug ineffective [Unknown]

NARRATIVE: CASE EVENT DATE: 201505
